FAERS Safety Report 9978649 (Version 1)
Quarter: 2014Q1

REPORT INFORMATION
  Report Type: Report from Study
  Country: US (occurrence: US)
  Receive Date: 20140306
  Receipt Date: 20140306
  Transmission Date: 20141002
  Serious: No
  Sender: FDA-Public Use
  Company Number: US-ABBVIE-13P-163-1171673-00

PATIENT
  Age: 53 Year
  Sex: Female

DRUGS (7)
  1. HUMIRA [Suspect]
     Indication: CROHN^S DISEASE
     Dates: start: 20131117
  2. HUMIRA [Suspect]
     Dates: start: 20131118
  3. ALBUTEROL [Concomitant]
     Indication: ASTHMA
     Dosage: INHALER AND NEBULIZER
  4. STOMACH PILL [Concomitant]
     Indication: GASTROOESOPHAGEAL REFLUX DISEASE
  5. MUSCLE RELAXER [Concomitant]
     Indication: TREMOR
  6. UNKNOWN MEDICATION [Concomitant]
     Indication: GASTROINTESTINAL PAIN
  7. HYDROCODONE [Concomitant]
     Indication: GASTROINTESTINAL PAIN
     Dosage: 10/325MG

REACTIONS (1)
  - Arthralgia [Recovering/Resolving]
